FAERS Safety Report 13217650 (Version 1)
Quarter: 2017Q1

REPORT INFORMATION
  Report Type: Other
  Country: US (occurrence: US)
  Receive Date: 20170210
  Receipt Date: 20170210
  Transmission Date: 20170428
  Serious: Yes (Disabling, Other)
  Sender: FDA-Public Use
  Company Number: US-ACORDA-ACO_125007_2016

PATIENT
  Sex: Male
  Weight: 61.22 kg

DRUGS (12)
  1. AMITRIPTYLINE [Concomitant]
     Active Substance: AMITRIPTYLINE
  2. DULOXETINE. [Concomitant]
     Active Substance: DULOXETINE
     Indication: DEPRESSION
  3. METHOTREXATE. [Concomitant]
     Active Substance: METHOTREXATE
     Indication: DISEASE PROGRESSION
     Dosage: 2.5 MG, 6 PILLS A WEEK
     Route: 048
     Dates: start: 200202, end: 201605
  4. AVONEX [Concomitant]
     Active Substance: INTERFERON BETA-1A
     Indication: DISEASE PROGRESSION
     Dosage: 1 INJECTION WEEKLY
     Dates: start: 200102, end: 201605
  5. OMEPRAZOLE. [Concomitant]
     Active Substance: OMEPRAZOLE
     Indication: BARRETT^S OESOPHAGUS
     Dosage: 20 MG, QD
     Route: 048
     Dates: start: 200405
  6. HYDROCHLOROTHIAZIDE. [Concomitant]
     Active Substance: HYDROCHLOROTHIAZIDE
     Indication: HYPERTENSION
     Dosage: 12.5 MG, QD
     Route: 048
     Dates: start: 2013, end: 201605
  7. TIZANIDINE. [Suspect]
     Active Substance: TIZANIDINE
     Indication: DISEASE PROGRESSION
     Route: 065
  8. DULOXETINE. [Concomitant]
     Active Substance: DULOXETINE
     Indication: ANXIETY
     Dosage: 30 MG, TID
     Route: 048
     Dates: start: 201602
  9. FLUTICASONE PROPIONATE. [Concomitant]
     Active Substance: FLUTICASONE PROPIONATE
     Indication: HYPERSENSITIVITY
     Dosage: 50 UNK, QD
     Route: 045
     Dates: start: 2006
  10. BACLOFEN. [Concomitant]
     Active Substance: BACLOFEN
     Indication: MULTIPLE SCLEROSIS
     Dosage: 10 MG, BID
     Route: 048
     Dates: start: 2005
  11. AMPYRA [Suspect]
     Active Substance: DALFAMPRIDINE
     Indication: MULTIPLE SCLEROSIS
     Dosage: 10 MG, BID
     Route: 048
     Dates: end: 201605
  12. FOLIC ACID. [Concomitant]
     Active Substance: FOLIC ACID
     Indication: MULTIPLE SCLEROSIS
     Dosage: 1 MG, QD
     Route: 048
     Dates: start: 200102, end: 201605

REACTIONS (3)
  - Hypertension [Recovered/Resolved]
  - Abasia [Not Recovered/Not Resolved]
  - Multiple sclerosis [Not Recovered/Not Resolved]

NARRATIVE: CASE EVENT DATE: 2013
